FAERS Safety Report 6543270-6 (Version None)
Quarter: 2010Q1

REPORT INFORMATION
  Report Type: 
  Country: None (occurrence: None)
  Receive Date: 20100106
  Receipt Date: 20091218
  Transmission Date: 20100710
  Serious: No
  Sender: FDA-Public Use
  Company Number: 2009-00898

PATIENT
  Age: 62 Year
  Sex: Male
  Weight: 99.7913 kg

DRUGS (8)
  1. COLD REMEDY ZAVORS [Suspect]
     Dosage: Q3HRS - ONGOING
     Dates: start: 20091215
  2. LANTUS [Concomitant]
  3. INSULIN [Concomitant]
  4. NOVOLOG [Concomitant]
  5. LIPITOR [Concomitant]
  6. TOPROL-XL [Concomitant]
  7. AVAPRO [Concomitant]
  8. PRILOSEC [Concomitant]

REACTIONS (1)
  - AGEUSIA [None]
